FAERS Safety Report 19784694 (Version 1)
Quarter: 2021Q3

REPORT INFORMATION
  Report Type: Spontaneous
  Country: US (occurrence: US)
  Receive Date: 20210826
  Receipt Date: 20210826
  Transmission Date: 20211014
  Serious: Yes (Hospitalization)
  Sender: FDA-Public Use
  Company Number: None

PATIENT
  Age: 16 Year
  Sex: Female
  Weight: 61.23 kg

DRUGS (4)
  1. SOLU?MEDROL [Concomitant]
     Active Substance: METHYLPREDNISOLONE SODIUM SUCCINATE
  2. ACETAMINOPHEN 325 MG [Concomitant]
     Active Substance: ACETAMINOPHEN
  3. GAMUNEX?C [Suspect]
     Active Substance: HUMAN IMMUNOGLOBULIN G
  4. DIPHENHYDRAMINE 25 MG [Concomitant]

REACTIONS (3)
  - Vomiting [None]
  - Diarrhoea [None]
  - Malaise [None]

NARRATIVE: CASE EVENT DATE: 20210813
